FAERS Safety Report 4640688-3 (Version None)
Quarter: 2005Q2

REPORT INFORMATION
  Report Type: 
  Country: None (occurrence: None)
  Receive Date: 20050419
  Receipt Date: 20050406
  Transmission Date: 20051028
  Serious: Yes (Other)
  Sender: FDA-Public Use
  Company Number: 2005055801

PATIENT
  Age: 21 Year
  Sex: Female

DRUGS (1)
  1. DEPO-PROVERA [Suspect]
     Indication: CONTRACEPTION
     Dosage: 150 MG (150 MG , EVERY THREE MONTH, FIRST INJECTION)
     Dates: start: 20031125

REACTIONS (10)
  - AMENORRHOEA [None]
  - ANAEMIA [None]
  - BLOOD PRESSURE DECREASED [None]
  - HEADACHE [None]
  - NAUSEA [None]
  - NERVOUSNESS [None]
  - SKIN DISCOLOURATION [None]
  - SYNCOPE [None]
  - TUBERCULOSIS [None]
  - VAGINAL HAEMORRHAGE [None]
